FAERS Safety Report 18042648 (Version 1)
Quarter: 2020Q3

REPORT INFORMATION
  Report Type: Spontaneous
  Country: US (occurrence: US)
  Receive Date: 20200720
  Receipt Date: 20200720
  Transmission Date: 20201103
  Serious: Yes (Hospitalization)
  Sender: FDA-Public Use
  Company Number: US-STRIDES ARCOLAB LIMITED-2020SP008127

PATIENT
  Age: 14 Year
  Sex: Female
  Weight: 15 kg

DRUGS (14)
  1. METRONIDAZOLE. [Suspect]
     Active Substance: METRONIDAZOLE
     Indication: CLOSTRIDIUM DIFFICILE INFECTION
     Dosage: 110 MILLIGRAM, EVERY 6 HRS (7.3 MG/KG/DOSE), ORAL SUSPENSION
     Route: 048
  2. AMOXICILLIN + CLAVULANIC ACID [Concomitant]
     Active Substance: AMOXICILLIN\CLAVULANIC ACID
     Indication: INFLUENZA
     Dosage: 330 MILLIGRAM (22 MG/KG/DOSE OF AMOXICILLIN), EVERY 12 HRS
     Route: 048
  3. AMOXICILLIN + CLAVULANIC ACID [Concomitant]
     Active Substance: AMOXICILLIN\CLAVULANIC ACID
     Indication: PNEUMONIA
  4. CEFTRIAXONE. [Concomitant]
     Active Substance: CEFTRIAXONE
     Indication: INFLUENZA
     Dosage: 1500 MILLIGRAM (100 MG/KG) EVERY 24 HOURS
     Route: 042
  5. CEFTRIAXONE. [Concomitant]
     Active Substance: CEFTRIAXONE
     Indication: PNEUMONIA
  6. OSELTAMIVIR [Concomitant]
     Active Substance: OSELTAMIVIR
     Indication: PNEUMONIA
  7. FAMOTIDINE. [Concomitant]
     Active Substance: FAMOTIDINE
     Indication: PRODUCT USED FOR UNKNOWN INDICATION
     Dosage: 8 MILLIGRAM,(0.5 MG/KG), BID
     Route: 048
  8. VANCOMYCIN [Concomitant]
     Active Substance: VANCOMYCIN
     Indication: INFLUENZA
     Dosage: 300 MILLIGRAM (20 MG/KG/DOSE), EVERY 8 HRS
     Route: 042
  9. OSELTAMIVIR [Concomitant]
     Active Substance: OSELTAMIVIR
     Indication: INFLUENZA
     Dosage: 30 MILLIGRAM (2 MG/KG/DOSE), EVERY 12 HRS
     Route: 065
  10. AMPICILLIN AND SULBACTAM [Concomitant]
     Active Substance: AMPICILLIN SODIUM\SULBACTAM SODIUM
     Indication: INFLUENZA
     Dosage: 750 MILLIGRAM (50 MG/KG/DOSE), EVERY 6 HRS
     Route: 042
  11. AMPICILLIN AND SULBACTAM [Concomitant]
     Active Substance: AMPICILLIN SODIUM\SULBACTAM SODIUM
     Indication: PNEUMONIA
  12. PREDNISOLONE. [Interacting]
     Active Substance: PREDNISOLONE
     Indication: TACHYPNOEA
     Dosage: 15 MILLIGRAM (1 MG/KG/DOSE) PREDNISONE INTENSOL SOLUTION VIA FEEDING TUBE TWICE DAILY
     Route: 048
  13. PREDNISOLONE. [Interacting]
     Active Substance: PREDNISOLONE
     Indication: OXYGEN SATURATION DECREASED
     Dosage: 15 MILLIGRAM (1 MG/KG/DOSE) EVERY12 HRS PREDNISOLONE ORAL SOLUTION
     Route: 048
  14. VANCOMYCIN [Concomitant]
     Active Substance: VANCOMYCIN
     Indication: PNEUMONIA

REACTIONS (7)
  - Grimacing [Recovered/Resolved]
  - Drug interaction [Unknown]
  - Crying [Recovered/Resolved]
  - Abdominal distension [Recovered/Resolved]
  - Alcohol intolerance [Recovered/Resolved]
  - Agitation [Recovered/Resolved]
  - Tachycardia [Recovered/Resolved]
